FAERS Safety Report 25561365 (Version 1)
Quarter: 2025Q3

REPORT INFORMATION
  Report Type: Report from Study
  Country: US (occurrence: US)
  Receive Date: 20250716
  Receipt Date: 20250716
  Transmission Date: 20251020
  Serious: No
  Sender: MALLINCKRODT
  Company Number: US-MALLINCKRODT-MNK202504091

PATIENT
  Age: 64 Year
  Sex: Male

DRUGS (2)
  1. CORTICOTROPIN [Suspect]
     Active Substance: CORTICOTROPIN
     Indication: Punctate keratitis
     Route: 058
     Dates: start: 20250613
  2. ENBREL [Concomitant]
     Active Substance: ETANERCEPT

REACTIONS (3)
  - Rhinorrhoea [Unknown]
  - Lacrimation increased [Unknown]
  - Nasopharyngitis [Unknown]

NARRATIVE: CASE EVENT DATE: 20250101
